FAERS Safety Report 9369722 (Version 1)
Quarter: 2013Q2

REPORT INFORMATION
  Report Type: Spontaneous
  Country: US (occurrence: None)
  Receive Date: 20130625
  Receipt Date: 20130625
  Transmission Date: 20140414
  Serious: Yes (Hospitalization)
  Sender: FDA-Public Use
  Company Number: None

PATIENT
  Sex: Male
  Weight: 64.5 kg

DRUGS (1)
  1. LATUDA [Suspect]
     Route: 048
     Dates: start: 201209, end: 20130614

REACTIONS (1)
  - Neuroleptic malignant syndrome [None]
